FAERS Safety Report 18161081 (Version 1)
Quarter: 2020Q3

REPORT INFORMATION
  Report Type: Spontaneous
  Country: DK (occurrence: DK)
  Receive Date: 20200818
  Receipt Date: 20200818
  Transmission Date: 20201103
  Serious: Yes (Hospitalization)
  Sender: FDA-Public Use
  Company Number: DK-TEVA-2020-DK-1814340

PATIENT
  Age: 63 Year
  Sex: Female
  Weight: 67 kg

DRUGS (2)
  1. EMTHEXATE [Suspect]
     Active Substance: METHOTREXATE
     Indication: RHEUMATOID ARTHRITIS
     Dosage: 15 MG
     Route: 048
     Dates: start: 20170127
  2. HUMIRA [Suspect]
     Active Substance: ADALIMUMAB
     Indication: CHORIORETINITIS
     Dosage: STRENGTH: 40MG/0.4ML, 40 MG
     Route: 058
     Dates: start: 20130515, end: 20190213

REACTIONS (1)
  - Renal cell carcinoma [Recovered/Resolved]
